FAERS Safety Report 12678861 (Version 1)
Quarter: 2016Q3

REPORT INFORMATION
  Report Type: Spontaneous
  Country: IT (occurrence: IT)
  Receive Date: 20160824
  Receipt Date: 20160824
  Transmission Date: 20161109
  Serious: Yes (Other)
  Sender: FDA-Public Use
  Company Number: IT-ASTRAZENECA-2016SE88650

PATIENT
  Age: 27689 Day
  Sex: Male

DRUGS (8)
  1. MERREM [Suspect]
     Active Substance: MEROPENEM
     Indication: BACTERIAL INFECTION
     Route: 042
     Dates: start: 20160628, end: 20160706
  2. LEVOXACIN [Suspect]
     Active Substance: LEVOFLOXACIN
     Indication: BACTERIAL INFECTION
     Route: 042
     Dates: start: 20160629, end: 20160706
  3. FLUIMUCIL [Concomitant]
     Active Substance: ACETYLCYSTEINE
     Indication: INCREASED UPPER AIRWAY SECRETION
     Route: 042
  4. ANTRA [Concomitant]
     Active Substance: OMEPRAZOLE
     Dosage: 80.0MG UNKNOWN
     Route: 042
  5. MERREM [Suspect]
     Active Substance: MEROPENEM
     Indication: BACTERIAL INFECTION
     Dosage: 2G/100 ML (SALINE SOLUTION) 3 TIMES A DAY
     Route: 042
  6. CLEXANE [Concomitant]
     Active Substance: ENOXAPARIN SODIUM
     Indication: THROMBOSIS PROPHYLAXIS
     Dosage: 4000.0IU UNKNOWN
     Route: 058
  7. ZYVOXID [Suspect]
     Active Substance: LINEZOLID
     Indication: BACTERIAL INFECTION
     Route: 042
     Dates: start: 20160628, end: 20160729
  8. DECADRON [Suspect]
     Active Substance: DEXAMETHASONE
     Indication: VOMITING
     Route: 042
     Dates: start: 20160628, end: 20160706

REACTIONS (3)
  - Hyperamylasaemia [Recovered/Resolved]
  - Gamma-glutamyltransferase increased [Recovered/Resolved]
  - Hyperbilirubinaemia [Recovered/Resolved]

NARRATIVE: CASE EVENT DATE: 20160704
